FAERS Safety Report 11024070 (Version 1)
Quarter: 2015Q2

REPORT INFORMATION
  Report Type: Spontaneous
  Country: FR (occurrence: FR)
  Receive Date: 20150413
  Receipt Date: 20150413
  Transmission Date: 20150821
  Serious: Yes (Other)
  Sender: FDA-Public Use
  Company Number: PHHY2015FR042172

PATIENT
  Age: 20 Year
  Sex: Male

DRUGS (1)
  1. VORICONAZOLE. [Suspect]
     Active Substance: VORICONAZOLE
     Indication: CHRONIC GRANULOMATOUS DISEASE
     Route: 065

REACTIONS (3)
  - Fluoride increased [Recovering/Resolving]
  - Bone pain [Recovering/Resolving]
  - Periostitis [Recovering/Resolving]
